FAERS Safety Report 14001218 (Version 1)
Quarter: 2017Q3

REPORT INFORMATION
  Report Type: Spontaneous
  Country: QA (occurrence: QA)
  Receive Date: 20170922
  Receipt Date: 20170922
  Transmission Date: 20171128
  Serious: Yes (Other)
  Sender: FDA-Public Use
  Company Number: QA-FRESENIUS KABI-FK201707895

PATIENT
  Sex: Male

DRUGS (4)
  1. METHYLPREDNISOLONE (MANUFACTURER UNKNOWN) [Suspect]
     Active Substance: METHYLPREDNISOLONE
     Indication: POLYMYOSITIS
     Route: 064
  2. PREDNISOLONE. [Suspect]
     Active Substance: PREDNISOLONE
     Route: 064
  3. PREDNISOLONE. [Suspect]
     Active Substance: PREDNISOLONE
     Indication: POLYMYOSITIS
     Route: 064
  4. AZATHIOPRINE. [Suspect]
     Active Substance: AZATHIOPRINE
     Indication: POLYMYOSITIS
     Route: 064

REACTIONS (4)
  - Neonatal respiratory distress syndrome [Unknown]
  - Foetal growth restriction [Unknown]
  - Maternal drugs affecting foetus [Unknown]
  - Foetal exposure during pregnancy [Unknown]
